FAERS Safety Report 6708045-3 (Version None)
Quarter: 2010Q2

REPORT INFORMATION
  Report Type: 
  Country: None (occurrence: None)
  Receive Date: 20100503
  Receipt Date: 20100429
  Transmission Date: 20101027
  Serious: Yes (Hospitalization)
  Sender: FDA-Public Use
  Company Number: US-GILEAD-2010-0028498

PATIENT
  Sex: Female
  Weight: 77.634 kg

DRUGS (10)
  1. LETAIRIS [Suspect]
     Indication: PULMONARY ARTERIAL HYPERTENSION
     Route: 048
     Dates: start: 20090622
  2. REVATIO [Concomitant]
  3. EPOPROSTENOL [Concomitant]
  4. WARFARIN [Concomitant]
  5. SPIRONOLACTONE [Concomitant]
  6. LASIX [Concomitant]
  7. DIGOXIN [Concomitant]
  8. ULTRAM [Concomitant]
  9. PHENERGAN [Concomitant]
  10. TYLENOL-500 [Concomitant]

REACTIONS (1)
  - DEVICE RELATED INFECTION [None]
